FAERS Safety Report 4988892-9 (Version None)
Quarter: 2006Q2

REPORT INFORMATION
  Report Type: 
  Country: None (occurrence: None)
  Receive Date: 20060425
  Receipt Date: 20060410
  Transmission Date: 20061013
  Serious: Yes (Hospitalization)
  Sender: FDA-Public Use
  Company Number: 200611603GDS

PATIENT
  Age: 79 Year
  Sex: Male

DRUGS (3)
  1. NAPROXEN [Suspect]
     Indication: ARTHRITIS
     Dosage: 325 MG, TOTAL DAILY, ORAL
     Route: 048
  2. ASPIRIN [Suspect]
     Indication: PROPHYLAXIS
     Dosage: 81 MG, TOTAL DAILY, ORAL
     Route: 048
  3. BLINDED INVESTIGATIONAL STUDY MEDICATION (UNCODEABLE ^INVESTIGATIONAL [Suspect]
     Indication: BENIGN PROSTATIC HYPERPLASIA
     Dosage: ORAL
     Route: 048
     Dates: start: 20050322

REACTIONS (5)
  - DIVERTICULITIS [None]
  - HAEMATOCRIT DECREASED [None]
  - HAEMOGLOBIN DECREASED [None]
  - RECTAL HAEMORRHAGE [None]
  - RED BLOOD CELL COUNT DECREASED [None]
